FAERS Safety Report 8113068-6 (Version None)
Quarter: 2012Q1

REPORT INFORMATION
  Report Type: 
  Country: None (occurrence: None)
  Receive Date: 20120203
  Receipt Date: 20110922
  Transmission Date: 20120608
  Serious: Yes (Death, Hospitalization)
  Sender: FDA-Public Use
  Company Number: US-VIIV HEALTHCARE LIMITED-B0751824A

PATIENT
  Age: 43 Year
  Sex: Female

DRUGS (8)
  1. METHADONE HCL [Concomitant]
  2. ETRAVIRINE [Suspect]
     Indication: HIV INFECTION
     Dosage: 200MG TWICE PER DAY
     Route: 048
     Dates: start: 20110329
  3. ABACAVIR [Suspect]
     Indication: HIV INFECTION
     Dosage: 600MG PER DAY
     Route: 048
     Dates: start: 20110816
  4. DARUNAVIR [Suspect]
     Indication: HIV INFECTION
     Dosage: 600MG TWICE PER DAY
     Route: 048
     Dates: start: 20110329
  5. RALTEGRAVIR [Suspect]
     Indication: HIV INFECTION
     Dosage: 400MG TWICE PER DAY
     Route: 048
     Dates: start: 20110329
  6. RITONAVIR [Concomitant]
     Indication: HIV INFECTION
     Dosage: 100MG TWICE PER DAY
     Route: 048
  7. TRUVADA [Concomitant]
     Indication: HIV INFECTION
     Route: 048
     Dates: start: 20110329
  8. LAMIVUDINE (EPIVIR HBV) [Concomitant]
     Indication: HIV INFECTION
     Dosage: 300MG PER DAY

REACTIONS (7)
  - ACUTE HEPATIC FAILURE [None]
  - HYPERSENSITIVITY [None]
  - HYPOTENSION [None]
  - DYSURIA [None]
  - RENAL FAILURE ACUTE [None]
  - RASH GENERALISED [None]
  - UROSEPSIS [None]
